FAERS Safety Report 8041940-4 (Version None)
Quarter: 2012Q1

REPORT INFORMATION
  Report Type: 
  Country: None (occurrence: None)
  Receive Date: 20120112
  Receipt Date: 20120104
  Transmission Date: 20120608
  Serious: Yes (Other)
  Sender: FDA-Public Use
  Company Number: PHHY2012DE001718

PATIENT
  Age: 45 Year
  Sex: Female

DRUGS (1)
  1. CYCLOSPORINE [Suspect]
     Indication: RENAL TRANSPLANT

REACTIONS (4)
  - ROAD TRAFFIC ACCIDENT [None]
  - MULTIPLE FRACTURES [None]
  - BREAST MASS [None]
  - FIBROADENOMA OF BREAST [None]
